FAERS Safety Report 11296285 (Version 1)
Quarter: 2015Q3

REPORT INFORMATION
  Report Type: Spontaneous
  Country: US (occurrence: US)
  Receive Date: 20150722
  Receipt Date: 20150722
  Transmission Date: 20151125
  Serious: Yes (Other)
  Sender: FDA-Public Use
  Company Number: US-ELI_LILLY_AND_COMPANY-US200909001599

PATIENT
  Age: 61 Year
  Sex: Male

DRUGS (4)
  1. REOPRO [Concomitant]
     Active Substance: ABCIXIMAB
  2. PLAVIX [Concomitant]
     Active Substance: CLOPIDOGREL BISULFATE
  3. EFFIENT [Suspect]
     Active Substance: PRASUGREL HYDROCHLORIDE
     Dosage: 60 MG, UNK
     Dates: start: 20090826
  4. HEPARIN [Concomitant]
     Active Substance: HEPARIN SODIUM

REACTIONS (1)
  - Retroperitoneal haemorrhage [Unknown]

NARRATIVE: CASE EVENT DATE: 20090827
